FAERS Safety Report 14326621 (Version 1)
Quarter: 2017Q4

REPORT INFORMATION
  Report Type: Spontaneous
  Country: US (occurrence: US)
  Receive Date: 20171226
  Receipt Date: 20171226
  Transmission Date: 20180321
  Serious: No
  Sender: FDA-Public Use
  Company Number: None

PATIENT
  Age: 54 Year
  Sex: Male

DRUGS (1)
  1. ALLOPURINOL. [Suspect]
     Active Substance: ALLOPURINOL
     Route: 048
     Dates: start: 20171219, end: 20171226

REACTIONS (3)
  - Product colour issue [None]
  - Product quality issue [None]
  - Urticaria [None]

NARRATIVE: CASE EVENT DATE: 20171219
